FAERS Safety Report 9932751 (Version 1)
Quarter: 2014Q1

REPORT INFORMATION
  Report Type: Spontaneous
  Country: IT (occurrence: None)
  Receive Date: 20140226
  Receipt Date: 20140226
  Transmission Date: 20141002
  Serious: Yes (Other)
  Sender: FDA-Public Use
  Company Number: AUR-APL-2014-01916

PATIENT
  Age: 60 Year
  Sex: Female

DRUGS (2)
  1. OLANZAPINE (OLANZAPINE) [Suspect]
     Indication: PRODUCT USED FOR UNKNOWN INDICATION
     Dosage: (2.5 MG, 1 D), ORAL
     Route: 048
     Dates: start: 20140116, end: 20140120
  2. LAROXYL [Suspect]
     Indication: DEPRESSION
     Dosage: (5 GTT, 1 D), ORAL
     Route: 048
     Dates: start: 20140116, end: 20140120

REACTIONS (2)
  - Paraesthesia [None]
  - Hypersensitivity [None]
